FAERS Safety Report 15860890 (Version 1)
Quarter: 2019Q1

REPORT INFORMATION
  Report Type: Spontaneous
  Country: US (occurrence: US)
  Receive Date: 20190124
  Receipt Date: 20190124
  Transmission Date: 20190417
  Serious: No
  Sender: FDA-Public Use
  Company Number: US-INSYS THERAPEUTICS, INC-INS201810-000406

PATIENT
  Sex: Male

DRUGS (2)
  1. SYNDROS [Suspect]
     Active Substance: DRONABINOL
     Indication: VOMITING
  2. SYNDROS [Suspect]
     Active Substance: DRONABINOL
     Indication: NAUSEA
     Dates: start: 20181003

REACTIONS (3)
  - Product taste abnormal [Unknown]
  - Incorrect route of product administration [Unknown]
  - Abdominal discomfort [Unknown]
